FAERS Safety Report 8558931-7 (Version None)
Quarter: 2012Q3

REPORT INFORMATION
  Report Type: 
  Country: None (occurrence: None)
  Receive Date: 20120802
  Receipt Date: 20120727
  Transmission Date: 20120928
  Serious: Yes (Hospitalization)
  Sender: FDA-Public Use
  Company Number: US-AMGEN-USASP2012047207

PATIENT
  Age: 72 Year
  Sex: Male

DRUGS (5)
  1. ENBREL [Suspect]
     Indication: RHEUMATOID ARTHRITIS
     Dosage: 25 MG, 2 TIMES/WK
     Dates: start: 19990701, end: 20120514
  2. METHOTREXATE [Concomitant]
     Dosage: UNK
  3. ALLOPURINOL [Concomitant]
     Dosage: UNK
  4. ATENOLOL [Concomitant]
     Dosage: UNK
  5. COLCRYS [Concomitant]
     Dosage: UNK

REACTIONS (5)
  - MITRAL VALVE REPAIR [None]
  - INFLAMMATION [None]
  - CARDIAC MURMUR [None]
  - RHEUMATOID ARTHRITIS [None]
  - HAEMOGLOBIN DECREASED [None]
